FAERS Safety Report 15587089 (Version 2)
Quarter: 2018Q4

REPORT INFORMATION
  Report Type: Report from Study
  Country: None (occurrence: CN)
  Receive Date: 20181105
  Receipt Date: 20181120
  Transmission Date: 20190205
  Serious: Yes (Hospitalization)
  Sender: FDA-Public Use
  Company Number: CN-ABBVIE-18P-035-2536682-00

PATIENT
  Age: 69 Year
  Sex: Male
  Weight: 75 kg

DRUGS (36)
  1. VENETOCLAX. [Suspect]
     Active Substance: VENETOCLAX
     Route: 048
     Dates: start: 20180816, end: 20180816
  2. SODIUM BICARBONATE. [Concomitant]
     Active Substance: SODIUM BICARBONATE
     Indication: PROPHYLAXIS
     Route: 048
     Dates: start: 20180812, end: 20180907
  3. FEBUXOSTAT. [Concomitant]
     Active Substance: FEBUXOSTAT
     Indication: PROPHYLAXIS
     Route: 048
     Dates: start: 20180812, end: 20180828
  4. 0.9% SODIUM CHLORIDE [Concomitant]
     Active Substance: SODIUM CHLORIDE
     Indication: PROPHYLAXIS
     Route: 042
     Dates: start: 20180811, end: 20180817
  5. COENZYME COMPLEX [Concomitant]
     Active Substance: UNSPECIFIED INGREDIENT
     Route: 041
     Dates: start: 20180917
  6. VENETOCLAX. [Suspect]
     Active Substance: VENETOCLAX
     Route: 048
     Dates: start: 20180817, end: 20181010
  7. CYTARABINE. [Suspect]
     Active Substance: CYTARABINE
     Indication: ACUTE MYELOID LEUKAEMIA
     Dosage: DAYS 1-10 OF EACH 28-DAY CYCLE
     Route: 058
     Dates: start: 20180814, end: 20180927
  8. FEBUXOSTAT. [Concomitant]
     Active Substance: FEBUXOSTAT
     Indication: BLOOD ALKALINISATION THERAPY
     Route: 048
     Dates: start: 20180918
  9. SODIUM ACETATE RINGER^S INJECTION [Concomitant]
     Indication: PROPHYLAXIS
     Route: 042
     Dates: start: 20180816, end: 20180817
  10. NOVOLIN 30R [Concomitant]
     Active Substance: INSULIN HUMAN
     Route: 058
     Dates: start: 20180806
  11. INSULIN ASPART [Concomitant]
     Active Substance: INSULIN ASPART
     Route: 059
     Dates: start: 20180918
  12. DOLASETRON MESYLATE [Concomitant]
     Active Substance: DOLASETRON MESYLATE
     Route: 041
     Dates: start: 20180919, end: 20180920
  13. ALANYL GLUTAMINE [Concomitant]
     Active Substance: ALANYL GLUTAMINE
     Indication: NUTRITIONAL SUPPLEMENTATION
     Route: 041
     Dates: start: 20180918, end: 20181020
  14. POTASSIUM CHLORIDE. [Concomitant]
     Active Substance: POTASSIUM CHLORIDE
     Indication: MINERAL SUPPLEMENTATION
     Dosage: SUSTAINED RELEASED
     Route: 048
     Dates: start: 20180926, end: 20180927
  15. ADEMETIONINE1,4-BUTANEDISULFONATE [Concomitant]
     Indication: PROPHYLAXIS
     Route: 041
     Dates: start: 20180917
  16. AMINO ACID [Concomitant]
     Active Substance: AMINO ACIDS
     Indication: NUTRITIONAL SUPPLEMENTATION
     Route: 041
     Dates: start: 20180918
  17. VENETOCLAX. [Suspect]
     Active Substance: VENETOCLAX
     Indication: ACUTE MYELOID LEUKAEMIA
     Route: 048
     Dates: start: 20180814, end: 20180814
  18. SODIUM BICARBONATE. [Concomitant]
     Active Substance: SODIUM BICARBONATE
     Indication: BLOOD ALKALINISATION THERAPY
     Route: 048
     Dates: start: 20180918
  19. INSULIN DETEMIR [Concomitant]
     Active Substance: INSULIN DETEMIR
     Indication: DIABETES MELLITUS
     Route: 058
     Dates: start: 20180816
  20. POTASSIUM CHLORIDE. [Concomitant]
     Active Substance: POTASSIUM CHLORIDE
     Dosage: SUSTAINED RELEASED
     Route: 048
     Dates: start: 20181018, end: 20181022
  21. OMEPRAZOLE ENTER-COATED [Concomitant]
     Indication: PROPHYLAXIS
     Route: 041
     Dates: start: 20180917
  22. PAQLNOSETRON HYDROCHLORIDE [Concomitant]
     Indication: PROPHYLAXIS OF NAUSEA AND VOMITING
     Route: 040
     Dates: start: 20180927, end: 20180928
  23. NOVOLIN 30R [Concomitant]
     Active Substance: INSULIN HUMAN
     Dosage: 14U MORNING?16U NIGHT
     Route: 058
     Dates: start: 20180812, end: 20180815
  24. COENZYME COMPLEX [Concomitant]
     Active Substance: UNSPECIFIED INGREDIENT
     Indication: CARDIOVASCULAR EVENT PROPHYLAXIS
     Route: 041
     Dates: start: 20180830, end: 20180907
  25. POTASSIUM CHLORIDE. [Concomitant]
     Active Substance: POTASSIUM CHLORIDE
     Dosage: SUSTAINED RELEASED
     Route: 048
     Dates: start: 20180928, end: 20181016
  26. CREATINE PHOSPHATE SODIUM [Concomitant]
     Active Substance: CREATINE
     Indication: CARDIOVASCULAR EVENT PROPHYLAXIS
     Route: 041
     Dates: start: 20180917
  27. NIFEDIPINE. [Concomitant]
     Active Substance: NIFEDIPINE
     Indication: HYPERTENSION
     Route: 048
     Dates: start: 198701
  28. RAMIPRIL. [Concomitant]
     Active Substance: RAMIPRIL
     Indication: HYPERTENSION
     Route: 048
     Dates: start: 20180723
  29. COENZYME COMPLEX [Concomitant]
     Active Substance: UNSPECIFIED INGREDIENT
     Indication: CARDIOVASCULAR EVENT PROPHYLAXIS
     Route: 041
     Dates: start: 20180812, end: 20180829
  30. TROPISETRON CITRATE [Concomitant]
     Indication: PROPHYLAXIS OF NAUSEA AND VOMITING
     Dosage: DOSE: 2 BOTTLE
     Route: 041
     Dates: start: 20180921, end: 20180926
  31. VENETOCLAX. [Suspect]
     Active Substance: VENETOCLAX
     Route: 048
     Dates: start: 20180815, end: 20180815
  32. INVERT SUGAR [Concomitant]
     Active Substance: INVERT SUGAR
     Indication: PROPHYLAXIS
     Route: 042
     Dates: start: 20180812, end: 20180817
  33. NOVOLIN 30R [Concomitant]
     Active Substance: INSULIN HUMAN
     Indication: DIABETES MELLITUS
     Dosage: 14U MORNING?16U NIGHT
     Route: 058
     Dates: start: 201703, end: 20180805
  34. INSULIN ASPART [Concomitant]
     Active Substance: INSULIN ASPART
     Indication: DIABETES MELLITUS
     Route: 058
     Dates: start: 20180816, end: 20180917
  35. DOLASETRON MESYLATE [Concomitant]
     Active Substance: DOLASETRON MESYLATE
     Indication: PROPHYLAXIS OF NAUSEA AND VOMITING
     Route: 041
     Dates: start: 20180814, end: 20180823
  36. REDUCED GLUTATHIONE [Concomitant]
     Indication: PROPHYLAXIS
     Route: 041
     Dates: start: 20180917

REACTIONS (1)
  - Leukopenia [Not Recovered/Not Resolved]

NARRATIVE: CASE EVENT DATE: 20180928
